FAERS Safety Report 16739653 (Version 1)
Quarter: 2019Q3

REPORT INFORMATION
  Report Type: Report from Study
  Country: IT (occurrence: IT)
  Receive Date: 20190826
  Receipt Date: 20190826
  Transmission Date: 20191005
  Serious: Yes (Other)
  Sender: FDA-Public Use
  Company Number: IT-TEVA-2019-IT-1095581

PATIENT
  Age: 27 Year
  Sex: Female

DRUGS (1)
  1. ACICLOVIR [Suspect]
     Active Substance: ACYCLOVIR
     Indication: HERPES SIMPLEX
     Route: 003

REACTIONS (2)
  - Periorbital oedema [Recovering/Resolving]
  - Nasal oedema [Recovering/Resolving]

NARRATIVE: CASE EVENT DATE: 20190629
